FAERS Safety Report 11822100 (Version 2)
Quarter: 2016Q1

REPORT INFORMATION
  Report Type: Spontaneous
  Country: IT (occurrence: IT)
  Receive Date: 20151210
  Receipt Date: 20160104
  Transmission Date: 20160525
  Serious: Yes (Hospitalization)
  Sender: FDA-Public Use
  Company Number: IT-TEVA-615356ACC

PATIENT
  Age: 67 Year
  Sex: Female
  Weight: 84 kg

DRUGS (4)
  1. CARBOPLATINO TEVA - 600 MG/60 ML - TEVA PHARMA B.V. [Suspect]
     Active Substance: CARBOPLATIN
     Dosage: 300 MG
  2. CARBOPLATINO TEVA - 600 MG/60 ML - TEVA PHARMA B.V. [Suspect]
     Active Substance: CARBOPLATIN
     Indication: LUNG ADENOCARCINOMA
     Dosage: 400 MG CYCLICAL
     Route: 042
     Dates: start: 20150218, end: 20150318
  3. ALIMTA [Suspect]
     Active Substance: PEMETREXED DISODIUM
     Indication: LUNG ADENOCARCINOMA
     Dosage: 900 MG CYCLICAL
     Route: 042
     Dates: start: 20150218, end: 20150409
  4. ALIMTA [Suspect]
     Active Substance: PEMETREXED DISODIUM
     Dosage: 700 MG

REACTIONS (1)
  - Pneumonitis [Recovered/Resolved]

NARRATIVE: CASE EVENT DATE: 20150223
